FAERS Safety Report 17776160 (Version 6)
Quarter: 2025Q1

REPORT INFORMATION
  Report Type: Spontaneous
  Country: US (occurrence: US)
  Receive Date: 20200513
  Receipt Date: 20250213
  Transmission Date: 20250409
  Serious: No
  Sender: PFIZER
  Company Number: US-PFIZER INC-2020191180

PATIENT
  Age: 59 Year
  Sex: Female

DRUGS (5)
  1. IBRANCE [Suspect]
     Active Substance: PALBOCICLIB
     Indication: Breast cancer female
     Dates: start: 20200221
  2. IBRANCE [Suspect]
     Active Substance: PALBOCICLIB
     Dates: start: 20200401
  3. IBRANCE [Suspect]
     Active Substance: PALBOCICLIB
     Dates: start: 20200628
  4. IBRANCE [Suspect]
     Active Substance: PALBOCICLIB
     Dates: start: 20211217, end: 20211217
  5. IBRANCE [Suspect]
     Active Substance: PALBOCICLIB

REACTIONS (7)
  - Constipation [Unknown]
  - Nausea [Unknown]
  - White blood cell count decreased [Unknown]
  - Infection [Unknown]
  - Alopecia [Unknown]
  - Blood cholesterol abnormal [Unknown]
  - Fatigue [Unknown]
